FAERS Safety Report 11608046 (Version 2)
Quarter: 2015Q4

REPORT INFORMATION
  Report Type: Spontaneous
  Country: JP (occurrence: JP)
  Receive Date: 20151007
  Receipt Date: 20151009
  Transmission Date: 20160304
  Serious: Yes (Death)
  Sender: FDA-Public Use
  Company Number: JP-BAYER-2015-433727

PATIENT
  Age: 53 Year
  Sex: Male

DRUGS (3)
  1. NEXAVAR [Suspect]
     Active Substance: SORAFENIB
     Indication: PAPILLARY THYROID CANCER
     Dosage: DAILY DOSE 800 MG
     Route: 048
  2. NEXAVAR [Suspect]
     Active Substance: SORAFENIB
     Indication: PAPILLARY THYROID CANCER
     Dosage: DAILY DOSE 400 MG
     Route: 048
  3. LENVATINIB [Concomitant]
     Active Substance: LENVATINIB
     Dosage: DAILY DOSE 24 MG
     Route: 048

REACTIONS (3)
  - Erythema multiforme [None]
  - Papillary thyroid cancer [Fatal]
  - Palmar-plantar erythrodysaesthesia syndrome [None]
